FAERS Safety Report 5147105-8 (Version None)
Quarter: 2006Q4

REPORT INFORMATION
  Report Type: 
  Country: None (occurrence: None)
  Receive Date: 20061108
  Receipt Date: 20061108
  Transmission Date: 20070319
  Serious: Yes (Death, Life-Threatening, Hospitalization, Disabling, Congenital Anomaly, Other)
  Sender: FDA-Public Use
  Company Number: None

PATIENT
  Age: 72 Year
  Sex: Female
  Weight: 65.7716 kg

DRUGS (2)
  1. OPTIRAY 160 [Suspect]
     Indication: CARDIAC PACEMAKER INSERTION
     Dates: start: 20020911, end: 20020930
  2. OPTIRAY 160 [Suspect]
     Indication: CARDIAC PERFORATION
     Dates: start: 20020911, end: 20020930

REACTIONS (5)
  - CARDIAC PERFORATION [None]
  - DIALYSIS [None]
  - IATROGENIC INJURY [None]
  - PROCEDURAL COMPLICATION [None]
  - RENAL FAILURE [None]
